FAERS Safety Report 10555947 (Version 1)
Quarter: 2014Q4

REPORT INFORMATION
  Report Type: Spontaneous
  Country: PL (occurrence: PL)
  Receive Date: 20141030
  Receipt Date: 20141030
  Transmission Date: 20150529
  Serious: Yes (Hospitalization)
  Sender: FDA-Public Use
  Company Number: PHHY2014PL138837

PATIENT
  Age: 21 Year
  Sex: Female

DRUGS (3)
  1. PREDNISONE. [Concomitant]
     Active Substance: PREDNISONE
     Indication: IMMUNOSUPPRESSION
     Dosage: 15 MG, QD
     Route: 065
  2. MYCOPHENOLATE MOFETIL. [Concomitant]
     Active Substance: MYCOPHENOLATE MOFETIL
     Indication: IMMUNOSUPPRESSION
     Dosage: 500 MG, BID
     Route: 065
  3. TACROLIMUS. [Suspect]
     Active Substance: TACROLIMUS
     Indication: IMMUNOSUPPRESSION
     Dosage: 11 MG, QD
     Route: 065

REACTIONS (24)
  - Hallucination, auditory [Recovered/Resolved]
  - Hyperreflexia [Recovered/Resolved]
  - Lack of spontaneous speech [Recovered/Resolved]
  - Mutism [Recovered/Resolved]
  - Unresponsive to stimuli [Recovered/Resolved]
  - Echopraxia [Recovered/Resolved]
  - Muscle rigidity [Recovered/Resolved]
  - Negativism [Recovered/Resolved]
  - Agitation [Recovered/Resolved]
  - Hypokinesia [Recovered/Resolved]
  - Staring [Recovered/Resolved]
  - Loose associations [Recovered/Resolved]
  - Persecutory delusion [Recovered/Resolved]
  - Stupor [Recovered/Resolved]
  - Aggression [Recovered/Resolved]
  - Posturing [Recovered/Resolved]
  - Distractibility [Recovered/Resolved]
  - Catatonia [Recovered/Resolved]
  - Neurotoxicity [Unknown]
  - Hypertonia [Recovered/Resolved]
  - Echolalia [Recovered/Resolved]
  - Inappropriate affect [Recovered/Resolved]
  - Social avoidant behaviour [Recovered/Resolved]
  - Disorientation [Recovered/Resolved]
